FAERS Safety Report 23504949 (Version 1)
Quarter: 2024Q1

REPORT INFORMATION
  Report Type: Spontaneous
  Country: GB (occurrence: GB)
  Receive Date: 20240209
  Receipt Date: 20240209
  Transmission Date: 20240410
  Serious: No
  Sender: FDA-Public Use
  Company Number: None

PATIENT
  Age: 52 Year
  Sex: Female
  Weight: 97.09 kg

DRUGS (19)
  1. GABAPENTIN [Suspect]
     Active Substance: GABAPENTIN
     Indication: Arthralgia
     Dosage: UNK (CAPSULES), (400 MG)
     Route: 048
  2. DULOXETINE [Concomitant]
     Active Substance: DULOXETINE
     Indication: Product used for unknown indication
     Dosage: 1 DOSAGE FORM, 30 MG, QD  (GASTRO-RESISTANT CAPSULES) (ONE CAPSULE EVERY MORNING)
     Route: 065
     Dates: start: 20220425
  3. DULOXETINE [Concomitant]
     Active Substance: DULOXETINE
     Dosage: 1 DOSAGE FORM, 60 MG, QD (GASTRO-RESISTANT CAPSULES) (ONE CAPSULE EVERY MORNING)
     Route: 065
     Dates: start: 20220425, end: 20220520
  4. DULOXETINE [Concomitant]
     Active Substance: DULOXETINE
     Dosage: 1 DOSAGE FORM, 30 MG, QD (GASTRO-RESISTANT CAPSULES) (ONE CAPSULE EVERY MORNING)
     Route: 065
     Dates: start: 20220520
  5. DULOXETINE [Concomitant]
     Active Substance: DULOXETINE
     Dosage: 1 DOSAGE FORM, 60 MG, QD (GASTRO-RESISTANT CAPSULES) (ONE CAPSULE ON)
     Route: 065
     Dates: start: 20220520
  6. DULOXETINE [Concomitant]
     Active Substance: DULOXETINE
     Dosage: 1 DOSAGE FORM, 30 MG, QD  (GASTRO-RESISTANT CAPSULES) (ONE CAPSULE EVERY MORNING)
     Route: 065
     Dates: start: 20220520, end: 20220718
  7. DULOXETINE [Concomitant]
     Active Substance: DULOXETINE
     Dosage: 1 DOSAGE FORM, 30 MG, QD (GASTRO-RESISTANT CAPSULES) (ONE CAPSULE ON)
     Route: 065
     Dates: start: 20220520, end: 20220718
  8. GABAPENTIN [Concomitant]
     Active Substance: GABAPENTIN
     Indication: Arthralgia
     Dosage: 1 DOSAGE FORM, TID, 300 MG
     Route: 065
     Dates: start: 20220520
  9. GABAPENTIN [Concomitant]
     Active Substance: GABAPENTIN
     Dosage: 1 DOSAGE FORM, TID, 100MG
     Route: 065
     Dates: start: 20220617
  10. GABAPENTIN [Concomitant]
     Active Substance: GABAPENTIN
     Dosage: UNK, 300 MG,  2 THREE TIMES A DAY FOR 7D THEN ONE THREE TIMES A DAY FOR 7D AND STOP
     Route: 065
     Dates: start: 20220718
  11. RAMIPRIL [Concomitant]
     Active Substance: RAMIPRIL
     Indication: Product used for unknown indication
     Dosage: 1 DOSAGE FORM, QD (ONE CAPSULE ONCE A DAY)
     Route: 065
     Dates: start: 20220425, end: 20220520
  12. RAMIPRIL [Concomitant]
     Active Substance: RAMIPRIL
     Dosage: 1 DOSAGE FORM, QD (ONE CAPSULE ONCE A DAY)
     Route: 065
     Dates: start: 20220425
  13. RAMIPRIL [Concomitant]
     Active Substance: RAMIPRIL
     Dosage: 1 DOSAGE FORM, QD (ONE CAPSULE ONCE A DAY)
     Route: 065
     Dates: start: 20220520, end: 20220718
  14. RAMIPRIL [Concomitant]
     Active Substance: RAMIPRIL
     Dosage: 1 DOSAGE FORM, QD (ONE CAPSULE ONCE A DAY)
     Route: 065
     Dates: start: 20220520
  15. SUMATRIPTAN [Concomitant]
     Active Substance: SUMATRIPTAN
     Indication: Product used for unknown indication
     Dosage: 1 DOSAGE FORM, 1 TABLET AT THE ONSET OF MIGRAINE ATTACK. CAN REPEAT DOSE AFTER 2 HOURS IF  MIGRAINE
     Route: 065
     Dates: start: 20220425
  16. SUMATRIPTAN [Concomitant]
     Active Substance: SUMATRIPTAN
     Dosage: 1 DOSAGE FORM, 1 TABLET AT THE ONSET OF MIGRAINE ATTACK. CAN REPEAT DOSE AFTER 2 HOURS IF  MIGRAINE
     Route: 065
     Dates: start: 20220425, end: 20220520
  17. SUMATRIPTAN [Concomitant]
     Active Substance: SUMATRIPTAN
     Dosage: 1 DOSAGE FORM, 1 TABLET AT THE ONSET OF MIGRAINE ATTACK. CAN REPEAT DOSE AFTER 2 HOURS IF  MIGRAINE
     Route: 065
     Dates: start: 20220520
  18. SUMATRIPTAN [Concomitant]
     Active Substance: SUMATRIPTAN
     Dosage: 1 DOSAGE FORM, 1 TABLET AT THE ONSET OF MIGRAINE ATTACK. CAN REPEAT DOSE AFTER 2 HOURS IF  MIGRAINE
     Route: 065
     Dates: start: 20220520, end: 20220718
  19. TRAMADOL [Concomitant]
     Active Substance: TRAMADOL\TRAMADOL HYDROCHLORIDE
     Indication: Product used for unknown indication
     Dosage: UNK, PRN (1 OR 2 AS REQUIRED, MAX 8 IN ANY ONE DAY)
     Route: 065
     Dates: start: 20220427

REACTIONS (1)
  - Abdominal pain upper [Recovered/Resolved]

NARRATIVE: CASE EVENT DATE: 20220520
